FAERS Safety Report 16514122 (Version 1)
Quarter: 2019Q3

REPORT INFORMATION
  Report Type: Report from Study
  Country: US (occurrence: US)
  Receive Date: 20190701
  Receipt Date: 20190701
  Transmission Date: 20191004
  Serious: Yes (Hospitalization, Other)
  Sender: FDA-Public Use
  Company Number: US-BIOGEN-2019BI00747122

PATIENT
  Sex: Male
  Weight: 163.44 kg

DRUGS (4)
  1. THIAMINE. [Concomitant]
     Active Substance: THIAMINE
     Indication: PROPHYLAXIS
     Route: 065
  2. METOLAZONE. [Concomitant]
     Active Substance: METOLAZONE
     Indication: PRODUCT USED FOR UNKNOWN INDICATION
     Route: 065
  3. TYSABRI [Suspect]
     Active Substance: NATALIZUMAB
     Indication: MULTIPLE SCLEROSIS
     Route: 042
     Dates: start: 20160923, end: 20190125
  4. CELEBREX [Suspect]
     Active Substance: CELECOXIB
     Indication: PRODUCT USED FOR UNKNOWN INDICATION
     Route: 065

REACTIONS (17)
  - Nausea [Recovered/Resolved]
  - Dermatitis [Unknown]
  - Cellulitis [Recovered/Resolved]
  - Fungal skin infection [Recovered/Resolved]
  - Encephalopathy [Recovered/Resolved]
  - Obesity [Unknown]
  - Lymphoedema [Unknown]
  - Confusional state [Unknown]
  - Peripheral vascular disorder [Unknown]
  - Dermal cyst [Unknown]
  - Vomiting [Recovered/Resolved]
  - Multiple sclerosis [Recovered/Resolved]
  - Asthenia [Unknown]
  - Cellulitis [Recovered/Resolved]
  - Leukocytosis [Unknown]
  - Cellulitis streptococcal [Recovered/Resolved]
  - Peripheral venous disease [Unknown]

NARRATIVE: CASE EVENT DATE: 2016
